FAERS Safety Report 7826147-5 (Version None)
Quarter: 2011Q4

REPORT INFORMATION
  Report Type: 
  Country: None (occurrence: None)
  Receive Date: 20111019
  Receipt Date: 20111010
  Transmission Date: 20120403
  Serious: Yes (Other)
  Sender: FDA-Public Use
  Company Number: US-ASTRAZENECA-2011SE59731

PATIENT
  Age: 57 Year
  Sex: Female

DRUGS (1)
  1. ATACAND [Suspect]
     Route: 048

REACTIONS (8)
  - THROMBOSIS [None]
  - DYSPNOEA [None]
  - GLAUCOMA [None]
  - CHEST DISCOMFORT [None]
  - OEDEMA PERIPHERAL [None]
  - MALAISE [None]
  - EYE SWELLING [None]
  - DRUG DOSE OMISSION [None]
